FAERS Safety Report 21305750 (Version 2)
Quarter: 2022Q3

REPORT INFORMATION
  Report Type: Spontaneous
  Country: US (occurrence: US)
  Receive Date: 20220908
  Receipt Date: 20220930
  Transmission Date: 20221027
  Serious: No
  Sender: FDA-Public Use
  Company Number: US-GSKCCFUS-Case-01480068_AE-84545

PATIENT
  Sex: Female

DRUGS (9)
  1. IMITREX [Suspect]
     Active Substance: SUMATRIPTAN SUCCINATE
     Indication: Product used for unknown indication
     Dosage: 6 MG/ 0.5 ML
  2. IMITREX [Suspect]
     Active Substance: SUMATRIPTAN SUCCINATE
  3. IMITREX [Suspect]
     Active Substance: SUMATRIPTAN SUCCINATE
     Indication: Product used for unknown indication
     Dosage: 6 MG/ 0.5 ML
  4. IMITREX [Suspect]
     Active Substance: SUMATRIPTAN SUCCINATE
  5. IMITREX [Suspect]
     Active Substance: SUMATRIPTAN SUCCINATE
  6. IMITREX [Suspect]
     Active Substance: SUMATRIPTAN SUCCINATE
     Indication: Product used for unknown indication
     Dosage: 6 MG/ 0.5 ML
  7. IMITREX [Suspect]
     Active Substance: SUMATRIPTAN SUCCINATE
  8. IMITREX [Suspect]
     Active Substance: SUMATRIPTAN SUCCINATE
  9. IMITREX [Suspect]
     Active Substance: SUMATRIPTAN SUCCINATE

REACTIONS (4)
  - Wrong technique in device usage process [Unknown]
  - Expired device used [Unknown]
  - Product dose omission issue [Unknown]
  - Product complaint [Unknown]
